FAERS Safety Report 5316828-X (Version None)
Quarter: 2007Q2

REPORT INFORMATION
  Report Type: 
  Country: None (occurrence: None)
  Receive Date: 20070501
  Receipt Date: 20070501
  Transmission Date: 20071010
  Serious: Yes (Hospitalization)
  Sender: FDA-Public Use
  Company Number: None

PATIENT
  Age: 34 Year
  Sex: Male

DRUGS (1)
  1. MEPERIDINE HCL [Suspect]
     Indication: PAIN
     Dosage: 25MG ONCE IV
     Route: 042
     Dates: start: 20070419, end: 20070419

REACTIONS (1)
  - CONVULSION [None]
